FAERS Safety Report 5768170-0 (Version None)
Quarter: 2008Q2

REPORT INFORMATION
  Report Type: 
  Country: None (occurrence: None)
  Receive Date: 20080612
  Receipt Date: 20080602
  Transmission Date: 20081010
  Serious: Yes (Other)
  Sender: FDA-Public Use
  Company Number: CH-AMGEN-UK284190

PATIENT
  Sex: Male

DRUGS (5)
  1. MIMPARA [Suspect]
     Indication: HYPERPARATHYROIDISM SECONDARY
     Route: 048
     Dates: start: 20080411, end: 20080522
  2. ARANESP [Concomitant]
     Route: 058
     Dates: start: 20060424
  3. CALCIUM ACETATE [Concomitant]
     Route: 048
     Dates: start: 20070909
  4. COZAAR [Concomitant]
     Route: 048
     Dates: start: 20080123
  5. ASPIRIN [Concomitant]
     Route: 048
     Dates: start: 20050925

REACTIONS (1)
  - HEPATITIS [None]
